FAERS Safety Report 9792532 (Version 1)
Quarter: 2014Q1

REPORT INFORMATION
  Report Type: Spontaneous
  Country: US (occurrence: US)
  Receive Date: 20140102
  Receipt Date: 20140102
  Transmission Date: 20141002
  Serious: No
  Sender: FDA-Public Use
  Company Number: US-SANOFI-AVENTIS-2013SA093697

PATIENT
  Age: 54 Year
  Sex: Female

DRUGS (2)
  1. AUBAGIO [Suspect]
     Route: 048
  2. TRAMADOL [Concomitant]
     Indication: MULTIPLE SCLEROSIS

REACTIONS (2)
  - Musculoskeletal stiffness [Unknown]
  - Peroneal nerve palsy [Unknown]
